FAERS Safety Report 21270857 (Version 1)
Quarter: 2022Q3

REPORT INFORMATION
  Report Type: Spontaneous
  Country: US (occurrence: US)
  Receive Date: 20220830
  Receipt Date: 20220830
  Transmission Date: 20221027
  Serious: No
  Sender: FDA-Public Use
  Company Number: US-PFIZER INC-202201104749

PATIENT
  Age: 63 Year
  Sex: Female

DRUGS (1)
  1. IBRANCE [Suspect]
     Active Substance: PALBOCICLIB
     Dosage: 1 DF, CYCLIC (TAKE 1 TABLET DAILY FOR 21 DAYS THEN STOP FOR 7 DAYS)
     Dates: start: 20220802, end: 20220817

REACTIONS (2)
  - Diarrhoea [Recovered/Resolved]
  - Escherichia infection [Recovering/Resolving]

NARRATIVE: CASE EVENT DATE: 20220811
